FAERS Safety Report 10199423 (Version 1)
Quarter: 2014Q2

REPORT INFORMATION
  Report Type: Other
  Country: US (occurrence: US)
  Receive Date: 20140527
  Receipt Date: 20140527
  Transmission Date: 20141212
  Serious: No
  Sender: FDA-Public Use
  Company Number: US-ASTELLAS-2014US005459

PATIENT
  Sex: 0

DRUGS (2)
  1. ADENOSCAN [Suspect]
     Indication: PRODUCT USED FOR UNKNOWN INDICATION
     Dosage: UNK UNK, TOTAL DOSE
     Route: 042
  2. ADENOSCAN [Suspect]
     Dosage: UNK UNK, TOTAL DOSE
     Route: 042

REACTIONS (1)
  - Drug ineffective [Recovered/Resolved]
